FAERS Safety Report 6286549-8 (Version None)
Quarter: 2009Q3

REPORT INFORMATION
  Report Type: 
  Country: None (occurrence: None)
  Receive Date: 20090727
  Receipt Date: 20090727
  Transmission Date: 20100115
  Serious: No
  Sender: FDA-Public Use
  Company Number: None

PATIENT
  Age: 74 Year
  Sex: Female
  Weight: 58.9676 kg

DRUGS (2)
  1. BACTRIM [Suspect]
     Indication: CYSTITIS
     Dosage: 1 TABLET 2X/DAY  ORAL
     Route: 048
     Dates: start: 20090704, end: 20090708
  2. BACTRIM [Suspect]
     Indication: URINARY TRACT INFECTION
     Dosage: 1 TABLET 2X/DAY  ORAL
     Route: 048
     Dates: start: 20090704, end: 20090708

REACTIONS (10)
  - APHTHOUS STOMATITIS [None]
  - GLOSSITIS [None]
  - GLOSSODYNIA [None]
  - MASTICATION DISORDER [None]
  - MUSCULOSKELETAL STIFFNESS [None]
  - NAUSEA [None]
  - ODYNOPHAGIA [None]
  - OROPHARYNGEAL PAIN [None]
  - TONGUE DISORDER [None]
  - TONGUE ULCERATION [None]
